FAERS Safety Report 8922216 (Version 1)
Quarter: 2012Q4

REPORT INFORMATION
  Report Type: 
  Country: IN (occurrence: IN)
  Receive Date: 20121123
  Receipt Date: 20121123
  Transmission Date: 20130627
  Serious: Yes (Death)
  Sender: FDA-Public Use
  Company Number: IN-PFIZER INC-2012039031

PATIENT
  Age: 62 Year
  Sex: Male

DRUGS (2)
  1. SUTENT [Suspect]
     Indication: METASTATIC RENAL CELL CARCINOMA
     Dosage: 50 mg, 1x/day
     Route: 048
     Dates: start: 20111111, end: 201201
  2. SUTENT [Suspect]
     Dosage: 50 mg, 1x/day
     Route: 048
     Dates: start: 201207, end: 201208

REACTIONS (6)
  - Dyspnoea [Fatal]
  - Volume blood decreased [Not Recovered/Not Resolved]
  - Pyrexia [Recovered/Resolved]
  - Asthenia [Recovered/Resolved]
  - Yellow skin [Recovered/Resolved]
  - Mouth ulceration [Recovering/Resolving]
